FAERS Safety Report 6637648-X (Version None)
Quarter: 2010Q1

REPORT INFORMATION
  Report Type: 
  Country: None (occurrence: None)
  Receive Date: 20100317
  Receipt Date: 20100308
  Transmission Date: 20100710
  Serious: Yes (Other)
  Sender: FDA-Public Use
  Company Number: US-NOVOPROD-305311

PATIENT
  Sex: Female
  Weight: 101.59 kg

DRUGS (3)
  1. VICTOZA [Suspect]
     Indication: DIABETES MELLITUS
     Dosage: 0.6 MG, QD
     Route: 058
     Dates: start: 20100301
  2. LEVEMIR [Suspect]
     Indication: DIABETES MELLITUS
     Dosage: 85 IU, QD
     Route: 058
  3. NOVOLOG [Suspect]
     Indication: DIABETES MELLITUS
     Dosage: 34 IU, QD (7 IU MORNING, 12 IU AFTERNOON, 15 IU EVENING)
     Route: 058

REACTIONS (2)
  - BLOOD GLUCOSE FLUCTUATION [None]
  - HEADACHE [None]
